FAERS Safety Report 10051843 (Version 1)
Quarter: 2014Q2

REPORT INFORMATION
  Report Type: Spontaneous
  Country: US (occurrence: US)
  Receive Date: 20140402
  Receipt Date: 20140402
  Transmission Date: 20141212
  Serious: Yes (Hospitalization)
  Sender: FDA-Public Use
  Company Number: US-009507513-1403USA013897

PATIENT
  Sex: Male

DRUGS (4)
  1. PROSCAR [Suspect]
     Dosage: UNK
     Route: 048
     Dates: start: 2014
  2. SINEMET [Suspect]
     Route: 048
  3. NAMENDA [Suspect]
  4. FLOMAX (MORNIFLUMATE) [Suspect]

REACTIONS (2)
  - Urinary retention [Unknown]
  - Wrong technique in drug usage process [Unknown]
